FAERS Safety Report 5160270-1 (Version None)
Quarter: 2006Q4

REPORT INFORMATION
  Report Type: 
  Country: None (occurrence: None)
  Receive Date: 20061129
  Receipt Date: 20020130
  Transmission Date: 20070319
  Serious: Yes (Hospitalization)
  Sender: FDA-Public Use
  Company Number: FR-GLAXOSMITHKLINE-B0135162A

PATIENT
  Age: 39 Year
  Sex: Male

DRUGS (5)
  1. ZIAGEN [Suspect]
     Indication: HIV INFECTION
     Dosage: 300MG TWICE PER DAY
     Route: 048
     Dates: start: 19990601
  2. TENOFOVIR [Suspect]
     Indication: HIV INFECTION
     Dosage: 1UNIT PER DAY
     Route: 048
     Dates: start: 20010601
  3. DIDANOSINE [Concomitant]
     Indication: HIV INFECTION
     Dosage: 400MG PER DAY
     Route: 065
     Dates: start: 19990601, end: 20010531
  4. EFAVIRENZ [Concomitant]
     Indication: HIV INFECTION
     Dosage: 1200MG PER DAY
     Route: 065
     Dates: start: 19990601, end: 20010531
  5. KALETRA [Concomitant]
     Indication: HIV INFECTION
     Dosage: 6UNIT PER DAY
     Route: 048
     Dates: start: 20010601

REACTIONS (5)
  - BLOOD ALKALINE PHOSPHATASE INCREASED [None]
  - BLOOD CREATINE INCREASED [None]
  - HAEMATOMA [None]
  - LIPOATROPHY [None]
  - WEIGHT DECREASED [None]
